FAERS Safety Report 6309186-5 (Version None)
Quarter: 2009Q3

REPORT INFORMATION
  Report Type: 
  Country: None (occurrence: None)
  Receive Date: 20090814
  Receipt Date: 20090707
  Transmission Date: 20100115
  Serious: No
  Sender: FDA-Public Use
  Company Number: A0795742A

PATIENT
  Age: 78 Year
  Sex: Female

DRUGS (8)
  1. COREG CR [Suspect]
     Indication: OBSTRUCTION
     Dosage: 10MG PER DAY
     Route: 048
     Dates: start: 20090612, end: 20090706
  2. LOVASTATIN [Concomitant]
  3. LEVOTHYROXINE [Concomitant]
  4. ASPIRIN [Concomitant]
  5. EVISTA [Concomitant]
  6. METHYLPREDNISOLONE 4MG TAB [Concomitant]
  7. ADVAIR HFA [Concomitant]
  8. AMLODIPINE [Concomitant]

REACTIONS (5)
  - COUGH [None]
  - DISORIENTATION [None]
  - DIZZINESS [None]
  - ILL-DEFINED DISORDER [None]
  - MUSCULAR WEAKNESS [None]
